FAERS Safety Report 7659197-2 (Version None)
Quarter: 2011Q3

REPORT INFORMATION
  Report Type: 
  Country: None (occurrence: None)
  Receive Date: 20110805
  Receipt Date: 20110802
  Transmission Date: 20111222
  Serious: Yes (Other)
  Sender: FDA-Public Use
  Company Number: CA-PFIZER INC-2011159893

PATIENT
  Age: 76 Year
  Sex: Female

DRUGS (14)
  1. DOCUSATE [Concomitant]
     Dosage: UNK
  2. COSOPT [Concomitant]
     Dosage: UNK
     Dates: start: 20050101
  3. LASIX [Concomitant]
     Dosage: UNK
  4. LORAZEPAM [Concomitant]
     Indication: SLEEP DISORDER
     Dosage: UNK
  5. POTASSIUM [Concomitant]
     Indication: SUPPLEMENTATION THERAPY
     Dosage: UNK
  6. XALATAN [Suspect]
     Indication: GLAUCOMA
     Dosage: 1 GTT IN LEFT EYE, 1X/DAY
     Route: 047
     Dates: start: 20050101
  7. SYMBICORT [Concomitant]
     Indication: DYSPNOEA
     Dosage: UNK
     Dates: start: 20050101
  8. FENTANYL [Concomitant]
     Indication: PAIN
     Dosage: UNK
     Dates: start: 20050101
  9. CALCIUM [Concomitant]
     Indication: SUPPLEMENTATION THERAPY
     Dosage: UNK
  10. AGGRENOX [Concomitant]
     Indication: CEREBROVASCULAR ACCIDENT
     Dosage: UNK
     Dates: start: 20050101
  11. OXYCODONE [Concomitant]
     Indication: PAIN
     Dosage: UNK
     Dates: start: 20050101
  12. SODIUM CHLORIDE [Concomitant]
     Indication: SUPPLEMENTATION THERAPY
     Dosage: UNK
  13. PERINDOPRIL ERBUMINE [Concomitant]
     Indication: HYPERTENSION
     Dosage: UNK
  14. SPIRIVA [Concomitant]
     Indication: DYSPNOEA
     Dosage: UNK

REACTIONS (2)
  - SURGERY [None]
  - TREMOR [None]
